FAERS Safety Report 24055961 (Version 3)
Quarter: 2025Q3

REPORT INFORMATION
  Report Type: Report from Study
  Country: KR (occurrence: KR)
  Receive Date: 20240705
  Receipt Date: 20250804
  Transmission Date: 20251020
  Serious: Yes (Hospitalization, Other)
  Sender: ALEXION PHARMACEUTICALS
  Company Number: 2024A149698

PATIENT
  Age: 66 Year
  Sex: Female

DRUGS (7)
  1. OSIMERTINIB [Suspect]
     Active Substance: OSIMERTINIB
     Indication: Non-small cell lung cancer
     Dosage: 80 MILLIGRAM, QD
     Dates: start: 20231006, end: 20240506
  2. DULOXTA [Concomitant]
     Indication: Thrombosis
  3. LYRICA [Concomitant]
     Active Substance: PREGABALIN
     Indication: Thrombosis
  4. PENIRAMIN [Concomitant]
     Indication: Drug hypersensitivity
  5. ACETAMINOPHEN\TRAMADOL [Concomitant]
     Active Substance: ACETAMINOPHEN\TRAMADOL
     Indication: Thrombosis
  6. UBACSIN [Concomitant]
     Indication: Thrombosis
  7. XARELTO [Concomitant]
     Active Substance: RIVAROXABAN
     Indication: Thrombosis

REACTIONS (1)
  - Thrombosis [Recovering/Resolving]

NARRATIVE: CASE EVENT DATE: 20240423
